FAERS Safety Report 23008096 (Version 4)
Quarter: 2023Q4

REPORT INFORMATION
  Report Type: Spontaneous
  Country: US (occurrence: US)
  Receive Date: 20230929
  Receipt Date: 20231110
  Transmission Date: 20240110
  Serious: Yes (Hospitalization)
  Sender: FDA-Public Use
  Company Number: US-ABBVIE-5428218

PATIENT
  Age: 57 Year
  Sex: Female

DRUGS (7)
  1. LEXAPRO [Suspect]
     Active Substance: ESCITALOPRAM OXALATE
     Indication: Suicidal ideation
     Dosage: LAST ADMIN DATE: 2023
     Route: 048
     Dates: start: 20230619
  2. LEXAPRO [Suspect]
     Active Substance: ESCITALOPRAM OXALATE
     Indication: Suicidal ideation
     Route: 048
     Dates: end: 20230801
  3. VITAMIN C [Concomitant]
     Active Substance: ASCORBIC ACID
     Indication: Prophylaxis
     Dates: start: 2020
  4. BENADRYL [Concomitant]
     Active Substance: DIPHENHYDRAMINE HYDROCHLORIDE
     Indication: Seasonal allergy
     Dates: start: 2022
  5. PEPPERMINT OIL [Concomitant]
     Active Substance: PEPPERMINT OIL
     Indication: Back pain
     Dates: start: 2019
  6. INGREZZA [Suspect]
     Active Substance: VALBENAZINE
     Indication: Huntington^s disease
     Dosage: 60 MG
     Route: 048
     Dates: start: 20230509, end: 20230723
  7. INGREZZA [Suspect]
     Active Substance: VALBENAZINE
     Indication: Huntington^s disease
     Route: 065
     Dates: start: 20230606, end: 20230613

REACTIONS (8)
  - Neurological decompensation [Unknown]
  - Nausea [Unknown]
  - Vomiting [Unknown]
  - Hyponatraemia [Recovered/Resolved]
  - Drug ineffective [Unknown]
  - Chorea [Unknown]
  - Hypokalaemia [Unknown]
  - Anxiety [Recovering/Resolving]

NARRATIVE: CASE EVENT DATE: 20230722
